FAERS Safety Report 4345789-5 (Version None)
Quarter: 2004Q2

REPORT INFORMATION
  Report Type: 
  Country: None (occurrence: None)
  Receive Date: 20040421
  Receipt Date: 20040414
  Transmission Date: 20050107
  Serious: Yes (Hospitalization)
  Sender: FDA-Public Use
  Company Number: 200410254BNE

PATIENT
  Age: 77 Year
  Sex: Male
  Weight: 76 kg

DRUGS (6)
  1. ASPIRIN [Suspect]
     Indication: MYOCARDIAL INFARCTION
     Dosage: 75 MG, TOTAL DAILY, ORAL
     Route: 048
     Dates: end: 20040329
  2. DICLOFENAC [Suspect]
     Indication: PAIN
     Dosage: 50 MG, TID, ORAL
     Route: 048
     Dates: start: 20040317, end: 20040329
  3. LISINOPRIL [Concomitant]
  4. PRAVASTATIN [Concomitant]
  5. AMITRIPTYLINE HCL [Concomitant]
  6. ALLOPURINOL TAB [Concomitant]

REACTIONS (6)
  - BLOOD CREATININE INCREASED [None]
  - BLOOD UREA INCREASED [None]
  - GOUT [None]
  - HAEMOGLOBIN DECREASED [None]
  - MELAENA [None]
  - RENAL IMPAIRMENT [None]
